FAERS Safety Report 9311658 (Version 1)
Quarter: 2013Q2

REPORT INFORMATION
  Report Type: Spontaneous
  Country: JP (occurrence: JP)
  Receive Date: 20130528
  Receipt Date: 20130528
  Transmission Date: 20140414
  Serious: Yes (Disabling)
  Sender: FDA-Public Use
  Company Number: JP-SANOFI-AVENTIS-2013SA052554

PATIENT
  Age: 79 Year
  Sex: Male

DRUGS (3)
  1. KAYEXALATE [Suspect]
     Indication: HYPERKALAEMIA
     Dosage: FORM: DRY SYRUP
     Route: 048
     Dates: start: 20120321, end: 20120710
  2. KAYEXALATE [Suspect]
     Indication: HYPERKALAEMIA
     Dosage: FORM: DRY SYRUP
     Route: 048
     Dates: start: 20120711, end: 20130122
  3. KAYEXALATE [Suspect]
     Indication: HYPERKALAEMIA
     Dosage: FORM: DRY SYRUP
     Route: 048
     Dates: start: 20130123, end: 20130210

REACTIONS (1)
  - Oedema [Recovered/Resolved]
